FAERS Safety Report 8156580-6 (Version None)
Quarter: 2012Q1

REPORT INFORMATION
  Report Type: 
  Country: None (occurrence: None)
  Receive Date: 20120222
  Receipt Date: 20120213
  Transmission Date: 20120608
  Serious: Yes (Disabling)
  Sender: FDA-Public Use
  Company Number: US-B.I. PHARMACEUTICALS,INC./RIDGEFIELD-2012-BP-02813BP

PATIENT
  Sex: Male

DRUGS (13)
  1. PRADAXA [Suspect]
     Dosage: 150 MG
     Route: 048
     Dates: start: 20101208
  2. COREG CR [Concomitant]
     Dosage: 80 MG
     Route: 048
     Dates: start: 20110601
  3. PRADAXA [Suspect]
     Indication: ATRIAL FIBRILLATION
     Dosage: 300 MG
     Route: 048
     Dates: start: 20101204, end: 20101208
  4. ASPIRIN [Concomitant]
     Dosage: 81 MG
     Route: 048
     Dates: start: 20110613
  5. INSPRA [Concomitant]
     Dosage: 25 MG
     Route: 048
  6. VITAMIN D [Concomitant]
     Indication: VITAMIN SUPPLEMENTATION
     Route: 048
  7. VITAMIN B-12 [Concomitant]
     Indication: VITAMIN SUPPLEMENTATION
     Route: 048
  8. ARICEPT [Concomitant]
     Indication: MEMORY IMPAIRMENT
     Dosage: 10 MG
     Route: 048
  9. FOLIC ACID [Concomitant]
     Indication: SUPPLEMENTATION THERAPY
     Dosage: 800 MG
     Route: 048
  10. CRESTOR [Concomitant]
     Dosage: 10 MG
     Route: 048
  11. QUINAPRIL [Concomitant]
     Indication: HYPERTENSION
     Dosage: 20 MG
     Route: 048
     Dates: start: 20020101
  12. AMIODARONE HCL [Concomitant]
     Dosage: 300 MG
     Route: 048
     Dates: start: 20110101
  13. CEREFOLIN [Concomitant]
     Indication: SUPPLEMENTATION THERAPY
     Route: 048

REACTIONS (10)
  - GAIT DISTURBANCE [None]
  - MEMORY IMPAIRMENT [None]
  - OEDEMA PERIPHERAL [None]
  - DEAFNESS BILATERAL [None]
  - TREMOR [None]
  - HYPERSOMNIA [None]
  - DIZZINESS [None]
  - ABDOMINAL DISCOMFORT [None]
  - HEARING IMPAIRED [None]
  - BLOOD PRESSURE DECREASED [None]
